FAERS Safety Report 25037626 (Version 1)
Quarter: 2025Q1

REPORT INFORMATION
  Report Type: Report from Study
  Country: US (occurrence: US)
  Receive Date: 20250304
  Receipt Date: 20250304
  Transmission Date: 20250408
  Serious: Yes (Other)
  Sender: GLAXOSMITHKLINE
  Company Number: US-GLAXOSMITHKLINE INC-US2025023719

PATIENT

DRUGS (2)
  1. BELIMUMAB [Suspect]
     Active Substance: BELIMUMAB
     Indication: Systemic lupus erythematosus
  2. ACYCLOVIR [Concomitant]
     Active Substance: ACYCLOVIR
     Indication: Papilloma viral infection

REACTIONS (1)
  - Systemic lupus erythematosus [Not Recovered/Not Resolved]
